FAERS Safety Report 6283005-8 (Version None)
Quarter: 2009Q3

REPORT INFORMATION
  Report Type: 
  Country: None (occurrence: None)
  Receive Date: 20090724
  Receipt Date: 20090715
  Transmission Date: 20100115
  Serious: Yes (Other)
  Sender: FDA-Public Use
  Company Number: PHEH2009US07558

PATIENT
  Sex: Male

DRUGS (1)
  1. EXELON [Suspect]
     Indication: PARKINSONISM
     Dosage: 4.5 MG, UNK

REACTIONS (6)
  - ASTHMA [None]
  - COUGH [None]
  - DYSPNOEA [None]
  - LUNG DISORDER [None]
  - RAPID EYE MOVEMENTS SLEEP ABNORMAL [None]
  - SLEEP APNOEA SYNDROME [None]
